FAERS Safety Report 22961414 (Version 3)
Quarter: 2023Q4

REPORT INFORMATION
  Report Type: Spontaneous
  Country: GB (occurrence: GB)
  Receive Date: 20230920
  Receipt Date: 20231020
  Transmission Date: 20240110
  Serious: Yes (Death, Hospitalization, Other)
  Sender: FDA-Public Use
  Company Number: GB-Accord-367493

PATIENT
  Age: 56 Year
  Sex: Male
  Weight: 165 kg

DRUGS (4)
  1. CABAZITAXEL [Suspect]
     Active Substance: CABAZITAXEL
     Indication: Prostate cancer
     Dosage: ADMINISTERED VIA A DRIP INTO A PATIENT^S BLOODSTREAM, EVERY 21 DAYS
     Route: 042
     Dates: start: 20230504, end: 20230512
  2. METOCLOPRAMIDE [Concomitant]
     Active Substance: METOCLOPRAMIDE
     Indication: Supportive care
     Dosage: WHEN REQUIRED UP TO THREE TIMES A DAY, EVERY 21 DAYS
     Route: 048
     Dates: start: 20230112, end: 20230512
  3. PREDNISOLONE [Concomitant]
     Active Substance: PREDNISOLONE
     Indication: Supportive care
     Dosage: ONCE A DAY EVERY 21 DAYS
     Route: 048
     Dates: start: 20230112, end: 20230512
  4. PREDNISOLONE [Concomitant]
     Active Substance: PREDNISOLONE
     Dosage: UNK
     Route: 065
     Dates: start: 20230504, end: 20230512

REACTIONS (7)
  - Death [Fatal]
  - Body temperature increased [Unknown]
  - Neuropathy peripheral [Unknown]
  - Erythema [Recovered/Resolved]
  - Neutropenic sepsis [Unknown]
  - Off label use [Unknown]
  - Overdose [Unknown]

NARRATIVE: CASE EVENT DATE: 20230504
